FAERS Safety Report 11309064 (Version 6)
Quarter: 2018Q1

REPORT INFORMATION
  Report Type: Report from Study
  Country: US (occurrence: US)
  Receive Date: 20150724
  Receipt Date: 20180227
  Transmission Date: 20180508
  Serious: Yes (Life-Threatening, Hospitalization)
  Sender: FDA-Public Use
  Company Number: US-SA-2015SA105837

PATIENT
  Age: 70 Year
  Sex: Female

DRUGS (21)
  1. LANTUS SOLOSTAR [Suspect]
     Active Substance: INSULIN GLARGINE
     Indication: TYPE 2 DIABETES MELLITUS
     Dosage: DOSE:30 UNIT(S)
     Route: 058
     Dates: start: 20150101
  2. LANTUS SOLOSTAR [Suspect]
     Active Substance: INSULIN GLARGINE
     Indication: TYPE 2 DIABETES MELLITUS
     Dosage: DOSE:25 UNIT(S)
     Route: 058
     Dates: start: 20151214
  3. LANTUS SOLOSTAR [Suspect]
     Active Substance: INSULIN GLARGINE
     Indication: BLOOD GLUCOSE INCREASED
     Dosage: DOSE:78 UNIT(S)
     Route: 058
     Dates: start: 2017
  4. SOLOSTAR [Suspect]
     Active Substance: DEVICE
     Indication: TYPE 2 DIABETES MELLITUS
     Dates: start: 20151214
  5. LANTUS SOLOSTAR [Suspect]
     Active Substance: INSULIN GLARGINE
     Indication: BLOOD GLUCOSE INCREASED
     Dosage: DOSE:30 UNIT(S)
     Route: 058
     Dates: start: 20150101
  6. LANTUS SOLOSTAR [Suspect]
     Active Substance: INSULIN GLARGINE
     Indication: TYPE 2 DIABETES MELLITUS
     Dosage: DOSE:78 UNIT(S)
     Route: 058
     Dates: start: 2017
  7. SOLOSTAR [Suspect]
     Active Substance: DEVICE
     Indication: TYPE 2 DIABETES MELLITUS
  8. LANTUS SOLOSTAR [Suspect]
     Active Substance: INSULIN GLARGINE
     Indication: BLOOD GLUCOSE INCREASED
     Dosage: DOSE:56 UNIT(S)
     Route: 058
  9. VALSARTAN. [Concomitant]
     Active Substance: VALSARTAN
     Route: 065
  10. LANTUS SOLOSTAR [Suspect]
     Active Substance: INSULIN GLARGINE
     Indication: BLOOD GLUCOSE INCREASED
     Dosage: DOSE:25 UNIT(S)
     Route: 058
     Dates: start: 20151214
  11. LANTUS SOLOSTAR [Suspect]
     Active Substance: INSULIN GLARGINE
     Indication: BLOOD GLUCOSE INCREASED
     Dosage: DOSE: 70-75 U DOSE:30 UNIT(S)
     Route: 058
  12. SOLOSTAR [Suspect]
     Active Substance: DEVICE
     Indication: TYPE 2 DIABETES MELLITUS
  13. SOLOSTAR [Suspect]
     Active Substance: DEVICE
     Indication: TYPE 2 DIABETES MELLITUS
     Dates: start: 2017
  14. TORSEMIDE. [Concomitant]
     Active Substance: TORSEMIDE
     Route: 065
  15. LANTUS SOLOSTAR [Suspect]
     Active Substance: INSULIN GLARGINE
     Indication: TYPE 2 DIABETES MELLITUS
     Dosage: DOSE: 70-75 U DOSE:30 UNIT(S)
     Route: 058
  16. MULTAQ [Suspect]
     Active Substance: DRONEDARONE
     Indication: ATRIAL FIBRILLATION
     Route: 048
     Dates: start: 20151211
  17. WARFARIN [Concomitant]
     Active Substance: WARFARIN
     Route: 065
  18. SOTALOL. [Concomitant]
     Active Substance: SOTALOL
     Route: 065
  19. BABY ASPIRIN [Concomitant]
     Active Substance: ASPIRIN
     Route: 065
  20. LANTUS SOLOSTAR [Suspect]
     Active Substance: INSULIN GLARGINE
     Indication: TYPE 2 DIABETES MELLITUS
     Dosage: DOSE:56 UNIT(S)
     Route: 058
  21. SOLOSTAR [Suspect]
     Active Substance: DEVICE
     Indication: TYPE 2 DIABETES MELLITUS
     Dates: start: 20150101

REACTIONS (24)
  - Memory impairment [Not Recovered/Not Resolved]
  - Cataract [Recovered/Resolved]
  - Hospitalisation [Recovered/Resolved]
  - Visual impairment [Recovered/Resolved]
  - Reading disorder [Unknown]
  - Cardiac failure congestive [Recovered/Resolved]
  - Gait disturbance [Recovered/Resolved]
  - Arrhythmia [Recovered/Resolved]
  - Fall [Recovered/Resolved]
  - Product use issue [Unknown]
  - Cataract [Recovered/Resolved]
  - Vision blurred [Not Recovered/Not Resolved]
  - Impaired driving ability [Not Recovered/Not Resolved]
  - Limb discomfort [Recovered/Resolved]
  - Malaise [Unknown]
  - Atrial fibrillation [Unknown]
  - Blood glucose increased [Not Recovered/Not Resolved]
  - Cerebrovascular accident [Recovered/Resolved]
  - Dysphonia [Unknown]
  - Weight increased [Recovered/Resolved]
  - Dehydration [Unknown]
  - Gait disturbance [Not Recovered/Not Resolved]
  - Weight decreased [Recovered/Resolved]
  - Head injury [Recovered/Resolved]

NARRATIVE: CASE EVENT DATE: 2015
